FAERS Safety Report 13111467 (Version 2)
Quarter: 2017Q1

REPORT INFORMATION
  Report Type: Spontaneous
  Country: AU (occurrence: AU)
  Receive Date: 20170112
  Receipt Date: 20170310
  Transmission Date: 20170428
  Serious: Yes (Hospitalization)
  Sender: FDA-Public Use
  Company Number: AU-IMPAX LABORATORIES, INC-2016-IPXL-02554

PATIENT
  Age: 18 Year
  Sex: Female

DRUGS (2)
  1. VITAMIN A [Suspect]
     Active Substance: VITAMIN A
     Indication: ACNE
     Dosage: 50000 UNITS, ALTERNATE DAYS
     Route: 065
     Dates: start: 197702
  2. TETRACYCLINE HYDROCHLORIDE. [Suspect]
     Active Substance: TETRACYCLINE HYDROCHLORIDE
     Indication: ACNE
     Dosage: 1 G, DAILY
     Route: 065
     Dates: start: 197701

REACTIONS (1)
  - Benign intracranial hypertension [Recovered/Resolved]
